FAERS Safety Report 4947868-8 (Version None)
Quarter: 2006Q1

REPORT INFORMATION
  Report Type: 
  Country: None (occurrence: None)
  Receive Date: 20060314
  Receipt Date: 20060301
  Transmission Date: 20060701
  Serious: Yes (Disabling, Other)
  Sender: FDA-Public Use
  Company Number: 2006032522

PATIENT
  Sex: Female

DRUGS (1)
  1. XANAX [Suspect]
     Indication: ILL-DEFINED DISORDER
     Dates: start: 19960101

REACTIONS (4)
  - DRUG DEPENDENCE [None]
  - FEELING ABNORMAL [None]
  - HALLUCINATION [None]
  - SKIN BURNING SENSATION [None]
